FAERS Safety Report 11255876 (Version 2)
Quarter: 2015Q3

REPORT INFORMATION
  Report Type: Report from Study
  Country: CH (occurrence: CH)
  Receive Date: 20150709
  Receipt Date: 20150715
  Transmission Date: 20151125
  Serious: Yes (Hospitalization)
  Sender: FDA-Public Use
  Company Number: CH-ABBVIE-15P-151-1421270-00

PATIENT
  Sex: Male

DRUGS (1)
  1. DUODOPA [Suspect]
     Active Substance: CARBIDOPA\LEVODOPA
     Indication: PARKINSON^S DISEASE
     Dosage: 24H THERAPY, MD 6ML, CD DAY 2ML/H, CD NIGHT: 1ML/H, ED 2ML
     Route: 050
     Dates: start: 20150421

REACTIONS (7)
  - General physical health deterioration [Unknown]
  - Disorientation [Unknown]
  - Sleep disorder [Unknown]
  - Dehydration [Unknown]
  - C-reactive protein increased [Unknown]
  - Confusional state [Unknown]
  - Device dislocation [Unknown]
